FAERS Safety Report 7013469-3 (Version None)
Quarter: 2010Q3

REPORT INFORMATION
  Report Type: 
  Country: None (occurrence: None)
  Receive Date: 20100924
  Receipt Date: 20100913
  Transmission Date: 20110219
  Serious: Yes (Other)
  Sender: FDA-Public Use
  Company Number: US-PFIZER INC-2010116289

PATIENT
  Sex: Male
  Weight: 82 kg

DRUGS (4)
  1. CLINDAMYCIN PHOSPHATE [Suspect]
     Indication: DENTAL CARE
     Dosage: UNK
     Route: 040
     Dates: start: 20100901, end: 20100905
  2. VERSED [Suspect]
     Indication: DENTAL CARE
     Dosage: UNK
     Dates: start: 20100901
  3. FENTANYL [Suspect]
     Indication: DENTAL CARE
     Dosage: UNK
     Dates: start: 20100901
  4. DECADRON [Suspect]
     Indication: DENTAL CARE
     Dosage: UNK
     Dates: start: 20100901

REACTIONS (3)
  - INJECTION SITE PAIN [None]
  - PHLEBITIS SUPERFICIAL [None]
  - THROMBOPHLEBITIS SUPERFICIAL [None]
